FAERS Safety Report 17834663 (Version 1)
Quarter: 2020Q2

REPORT INFORMATION
  Report Type: Spontaneous
  Country: US (occurrence: US)
  Receive Date: 20200528
  Receipt Date: 20200528
  Transmission Date: 20200714
  Serious: Yes (Other)
  Sender: FDA-Public Use
  Company Number: US-TORRENT-00010246

PATIENT
  Age: 69 Year
  Sex: Female

DRUGS (5)
  1. METOPROLOL SUCCINATE. [Concomitant]
     Active Substance: METOPROLOL SUCCINATE
     Indication: HYPERTENSION
     Dosage: UNKNOWN
  2. LEVOTHYROXINE. [Concomitant]
     Active Substance: LEVOTHYROXINE
     Indication: HYPOTHYROIDISM
     Dosage: UNKNOWN
     Route: 048
  3. PANTOPRAZOLE SODIUM. [Suspect]
     Active Substance: PANTOPRAZOLE SODIUM
     Indication: GASTROOESOPHAGEAL REFLUX DISEASE
     Dosage: DELAYED RELEASE TABLET, TAKING FROM MANY YEARS
     Route: 048
     Dates: start: 2001
  4. LOSARTAN. [Concomitant]
     Active Substance: LOSARTAN
     Indication: DEPRESSION
     Dosage: UNKNOWN
     Route: 048
  5. ANASTROZOL [Concomitant]
     Active Substance: ANASTROZOLE
     Indication: BREAST CANCER
     Dosage: UNKNOWN
     Route: 048

REACTIONS (4)
  - Abdominal pain upper [Unknown]
  - Muscle fatigue [Unknown]
  - Hypothyroidism [Not Recovered/Not Resolved]
  - Therapy cessation [Unknown]
